FAERS Safety Report 4520957-8 (Version None)
Quarter: 2004Q4

REPORT INFORMATION
  Report Type: 
  Country: None (occurrence: None)
  Receive Date: 20041206
  Receipt Date: 20041206
  Transmission Date: 20050328
  Serious: No
  Sender: FDA-Public Use
  Company Number: None

PATIENT
  Sex: Male
  Weight: 76 kg

DRUGS (10)
  1. OMEPRAZOLE [Suspect]
     Indication: GASTROOESOPHAGEAL REFLUX DISEASE
     Dosage: 20MG  QD  ORAL
     Route: 048
     Dates: start: 20040407, end: 20040817
  2. LOVASTATIN [Concomitant]
  3. ATENOLOL [Concomitant]
  4. ASPIRIN [Concomitant]
  5. LANOXIN [Concomitant]
  6. CANDESARTAN [Concomitant]
  7. NITROGLYCERIN [Concomitant]
  8. DIPHENHYDRAMINE [Concomitant]
  9. FUROSEMIDE [Concomitant]
  10. KCL TAB [Concomitant]

REACTIONS (1)
  - GYNAECOMASTIA [None]
